FAERS Safety Report 12775047 (Version 1)
Quarter: 2016Q3

REPORT INFORMATION
  Report Type: Spontaneous
  Country: US (occurrence: US)
  Receive Date: 20160922
  Receipt Date: 20160922
  Transmission Date: 20161109
  Serious: Yes (Other)
  Sender: FDA-Public Use
  Company Number: None

PATIENT
  Age: 28 Year
  Sex: Female
  Weight: 56.25 kg

DRUGS (1)
  1. SWIM-EAR [Suspect]
     Active Substance: ISOPROPYL ALCOHOL
     Indication: MIDDLE EAR EFFUSION
     Route: 001
     Dates: start: 20160921, end: 20160921

REACTIONS (3)
  - Ear discomfort [None]
  - Application site pain [None]
  - Throat irritation [None]

NARRATIVE: CASE EVENT DATE: 20160921
